FAERS Safety Report 4333800-7 (Version None)
Quarter: 2004Q2

REPORT INFORMATION
  Report Type: 
  Country: None (occurrence: None)
  Receive Date: 20040402
  Receipt Date: 20040322
  Transmission Date: 20050107
  Serious: Yes (Hospitalization)
  Sender: FDA-Public Use
  Company Number: DK-JNJFOC-20040304836

PATIENT
  Age: 68 Year
  Sex: Female
  Weight: 65 kg

DRUGS (4)
  1. RISPERDAL [Suspect]
     Dosage: 1/2 TABLET X 2
     Dates: start: 20011221, end: 20030926
  2. AKINETON [Concomitant]
  3. IMOVANE (ZOPICLONE) [Concomitant]
  4. HEXASOPTIN (VERAPAMIL) [Concomitant]

REACTIONS (2)
  - CONFUSIONAL STATE [None]
  - MEMORY IMPAIRMENT [None]
